FAERS Safety Report 25029494 (Version 11)
Quarter: 2025Q2

REPORT INFORMATION
  Report Type: Report from Study
  Country: CA (occurrence: CA)
  Receive Date: 20250303
  Receipt Date: 20250523
  Transmission Date: 20250717
  Serious: Yes (Other)
  Sender: CSL BEHRING
  Company Number: CA-BEH-2025194252

PATIENT
  Age: 67 Year
  Sex: Male
  Weight: 130.2 kg

DRUGS (10)
  1. HIZENTRA [Suspect]
     Active Substance: HUMAN IMMUNOGLOBULIN G
     Indication: Chronic inflammatory demyelinating polyradiculoneuropathy
     Dosage: 40 G, Q, DIVIDED IN 2 DOSES WITHIN A WEEK
     Route: 065
     Dates: start: 20210324
  2. HIZENTRA [Suspect]
     Active Substance: HUMAN IMMUNOGLOBULIN G
     Route: 065
     Dates: start: 20250203
  3. HIZENTRA [Suspect]
     Active Substance: HUMAN IMMUNOGLOBULIN G
     Route: 065
     Dates: start: 20250212
  4. HIZENTRA [Suspect]
     Active Substance: HUMAN IMMUNOGLOBULIN G
     Dosage: 40 G, QW (DIVIDED IN 2 DOSES)
     Route: 065
     Dates: start: 20210324
  5. HIZENTRA [Suspect]
     Active Substance: HUMAN IMMUNOGLOBULIN G
     Dosage: 40 G, QW (DIVIDED IN 2 DOSES)
     Route: 065
     Dates: start: 20210324
  6. HIZENTRA [Suspect]
     Active Substance: HUMAN IMMUNOGLOBULIN G
     Route: 058
     Dates: start: 20210324
  7. HIZENTRA [Suspect]
     Active Substance: HUMAN IMMUNOGLOBULIN G
     Dosage: 40 G, QW (DIVIDED IN 2 DOSES)
     Route: 058
     Dates: start: 20210324
  8. HIZENTRA [Suspect]
     Active Substance: HUMAN IMMUNOGLOBULIN G
     Route: 065
     Dates: start: 20250407
  9. OZEMPIC [Concomitant]
     Active Substance: SEMAGLUTIDE
     Dosage: 0.25 MG, QW
  10. LASIX [Concomitant]
     Active Substance: FUROSEMIDE

REACTIONS (38)
  - Coronary artery stenosis [Unknown]
  - Skin ulcer haemorrhage [Unknown]
  - Pain [Not Recovered/Not Resolved]
  - Pain in extremity [Unknown]
  - Pain [Unknown]
  - Back pain [Unknown]
  - Insomnia [Unknown]
  - Pain in extremity [Unknown]
  - Pain [Unknown]
  - Insomnia [Unknown]
  - Pain in extremity [Unknown]
  - Peripheral swelling [Unknown]
  - Dyspnoea exertional [Unknown]
  - Pain [Unknown]
  - Abdominal discomfort [Unknown]
  - Scab [Unknown]
  - Therapy interrupted [Unknown]
  - Pain [Unknown]
  - Foot deformity [Unknown]
  - Pain in extremity [Unknown]
  - Pain in extremity [Unknown]
  - Pain in extremity [Unknown]
  - Insomnia [Recovered/Resolved]
  - Hypoaesthesia [Unknown]
  - Peripheral swelling [Unknown]
  - Erythema [Unknown]
  - Pain in extremity [Unknown]
  - Back pain [Unknown]
  - Insomnia [Unknown]
  - Insomnia [Unknown]
  - Limb injury [Unknown]
  - Erythema [Unknown]
  - Pain [Unknown]
  - Fatigue [Unknown]
  - Somnolence [Unknown]
  - Visual impairment [Not Recovered/Not Resolved]
  - Incorrect dose administered [Unknown]
  - Product dose omission issue [Unknown]

NARRATIVE: CASE EVENT DATE: 20250201
